FAERS Safety Report 17684771 (Version 3)
Quarter: 2022Q4

REPORT INFORMATION
  Report Type: Report from Study
  Country: JP (occurrence: JP)
  Receive Date: 20200420
  Receipt Date: 20221102
  Transmission Date: 20230113
  Serious: Yes (Hospitalization, Other)
  Sender: FDA-Public Use
  Company Number: JP-BRISTOL-MYERS SQUIBB COMPANY-BMS-2020-030897

PATIENT
  Age: 53 Year
  Sex: Male
  Weight: 151.1 kg

DRUGS (17)
  1. YERVOY [Suspect]
     Active Substance: IPILIMUMAB
     Indication: Metastatic renal cell carcinoma
     Route: 041
     Dates: start: 20200317, end: 20200519
  2. YERVOY [Suspect]
     Active Substance: IPILIMUMAB
     Dosage: 1 ?????/?????, ONE TIME DOSE
     Route: 041
     Dates: start: 20200407, end: 20200407
  3. YERVOY [Suspect]
     Active Substance: IPILIMUMAB
     Dosage: 1 ?????/?????, ONE TIME DOSE
     Route: 041
     Dates: start: 20200428, end: 20200428
  4. YERVOY [Suspect]
     Active Substance: IPILIMUMAB
     Dosage: 1 ?????/?????, ONE TIME DOSE
     Route: 041
     Dates: start: 20200519, end: 20200519
  5. OPDIVO [Suspect]
     Active Substance: NIVOLUMAB
     Indication: Metastatic renal cell carcinoma
     Dosage: 240 ?????, ONE TIME DOSE
     Route: 041
     Dates: start: 20200317, end: 20200317
  6. OPDIVO [Suspect]
     Active Substance: NIVOLUMAB
     Dosage: 240 ?????, ONE TIME DOSE
     Route: 041
     Dates: start: 20200407, end: 20200407
  7. OPDIVO [Suspect]
     Active Substance: NIVOLUMAB
     Dosage: 240 ?????, ONE TIME DOSE
     Route: 041
     Dates: start: 20200428, end: 20200428
  8. OPDIVO [Suspect]
     Active Substance: NIVOLUMAB
     Dosage: 240 ?????, ONE TIME DOSE
     Route: 041
     Dates: start: 20200519, end: 20200519
  9. OPDIVO [Suspect]
     Active Substance: NIVOLUMAB
     Dosage: 240 ?????, ONE TIME DOSE
     Route: 041
     Dates: start: 20200609, end: 20200609
  10. OPDIVO [Suspect]
     Active Substance: NIVOLUMAB
     Dosage: 240 ?????, ONE TIME DOSE
     Route: 041
     Dates: start: 20200623, end: 20200623
  11. OPDIVO [Suspect]
     Active Substance: NIVOLUMAB
     Dosage: 240 ?????, ONE TIME DOSE
     Route: 041
     Dates: start: 20200707, end: 20200707
  12. OPDIVO [Suspect]
     Active Substance: NIVOLUMAB
     Dosage: 240 ?????, ONE TIME DOSE
     Route: 041
     Dates: start: 20200721, end: 20200721
  13. OPDIVO [Suspect]
     Active Substance: NIVOLUMAB
     Dosage: 240 ?????, ONE TIME DOSE
     Route: 041
     Dates: start: 20200804, end: 20200804
  14. OPDIVO [Suspect]
     Active Substance: NIVOLUMAB
     Dosage: 240 ?????, ONE TIME DOSE
     Route: 041
     Dates: start: 20200818, end: 20200818
  15. OPDIVO [Suspect]
     Active Substance: NIVOLUMAB
     Dosage: 240 ?????, ONE TIME DOSE
     Route: 041
     Dates: start: 20200901, end: 20200901
  16. OPDIVO [Suspect]
     Active Substance: NIVOLUMAB
     Dosage: 240 ?????, ONE TIME DOSE
     Route: 041
     Dates: start: 20201013, end: 20201013
  17. OPDIVO [Suspect]
     Active Substance: NIVOLUMAB
     Dosage: 240 ?????, ONE TIME DOSE
     Route: 041
     Dates: start: 20201027, end: 20201027

REACTIONS (4)
  - Hypothyroidism [Recovered/Resolved]
  - Cardiac failure [Recovered/Resolved]
  - Malignant neoplasm progression [Unknown]
  - Intracranial tumour haemorrhage [Unknown]

NARRATIVE: CASE EVENT DATE: 20200412
